FAERS Safety Report 24711762 (Version 1)
Quarter: 2024Q4

REPORT INFORMATION
  Report Type: Spontaneous
  Country: NO (occurrence: SE)
  Receive Date: 20241209
  Receipt Date: 20241209
  Transmission Date: 20250115
  Serious: Yes (Other)
  Sender: MYLAN
  Company Number: NO-MYLANLABS-2024M1108882

PATIENT
  Sex: Female

DRUGS (8)
  1. ZOLOFT [Suspect]
     Active Substance: SERTRALINE HYDROCHLORIDE
     Indication: Post-traumatic stress disorder
     Dosage: 50 MILLIGRAM, QD
     Route: 065
     Dates: end: 200306
  2. ZOLOFT [Suspect]
     Active Substance: SERTRALINE HYDROCHLORIDE
     Indication: Obsessive-compulsive disorder
     Dosage: 100 MILLIGRAM, QD
     Route: 065
  3. ZOLOFT [Suspect]
     Active Substance: SERTRALINE HYDROCHLORIDE
     Dosage: UNK
     Route: 065
     Dates: start: 2019, end: 2021
  4. ZOLOFT [Suspect]
     Active Substance: SERTRALINE HYDROCHLORIDE
     Dosage: 25 MILLIGRAM, QD
     Route: 065
  5. ZOLOFT [Suspect]
     Active Substance: SERTRALINE HYDROCHLORIDE
     Dosage: 50 MILLIGRAM, QD
     Route: 065
     Dates: start: 20230218, end: 20240618
  6. FLUOXETINE HYDROCHLORIDE [Suspect]
     Active Substance: FLUOXETINE HYDROCHLORIDE
     Indication: Product used for unknown indication
     Dosage: 40 MILLIGRAM, QD (40 MG PER DAY)
     Route: 065
     Dates: start: 2012
  7. LEVOTHYROXINE SODIUM [Concomitant]
     Active Substance: LEVOTHYROXINE SODIUM
     Indication: Hypothyroidism
     Dosage: UNK
     Route: 065
     Dates: start: 202402, end: 202406
  8. Yam [Concomitant]
     Indication: Premenstrual syndrome
     Dosage: UNK
     Route: 065

REACTIONS (11)
  - Cardiovascular disorder [Not Recovered/Not Resolved]
  - Lactic acidosis [Not Recovered/Not Resolved]
  - Raynaud^s phenomenon [Unknown]
  - Joint swelling [Unknown]
  - Chills [Unknown]
  - Heavy menstrual bleeding [Unknown]
  - Blood iron decreased [Unknown]
  - Muscle spasms [Not Recovered/Not Resolved]
  - Hyperhidrosis [Unknown]
  - Photosensitivity reaction [Unknown]
  - Migraine [Unknown]

NARRATIVE: CASE EVENT DATE: 20020101
